FAERS Safety Report 7752623-X (Version None)
Quarter: 2011Q3

REPORT INFORMATION
  Report Type: 
  Country: None (occurrence: None)
  Receive Date: 20110913
  Receipt Date: 20110830
  Transmission Date: 20111222
  Serious: Yes (Other)
  Sender: FDA-Public Use
  Company Number: FK201101842

PATIENT
  Age: 58 Year
  Sex: Female

DRUGS (3)
  1. DEXAMETHASONE [Suspect]
     Indication: PREMEDICATION
     Dosage: 40 MG
  2. CARBOPLATIN [Suspect]
     Indication: ENDOMETRIAL CANCER METASTATIC
     Dosage: 600 MG, INTRAVENOUS
     Route: 042
  3. PACLITAXEL [Suspect]
     Indication: ENDOMETRIAL CANCER METASTATIC
     Dosage: 320 MG, INTRAVENOUS
     Route: 042

REACTIONS (7)
  - JOINT SWELLING [None]
  - ARTHRALGIA [None]
  - STAPHYLOCOCCAL INFECTION [None]
  - PYOMYOSITIS [None]
  - DECREASED APPETITE [None]
  - LETHARGY [None]
  - IMMOBILE [None]
